FAERS Safety Report 4450551-9 (Version None)
Quarter: 2004Q3

REPORT INFORMATION
  Report Type: 
  Country: None (occurrence: None)
  Receive Date: 20040914
  Receipt Date: 20040907
  Transmission Date: 20050211
  Serious: No
  Sender: FDA-Public Use
  Company Number: 2004UW16746

PATIENT
  Age: 55 Year
  Sex: Female
  Weight: 80.0599 kg

DRUGS (2)
  1. NOLVADEX [Suspect]
     Indication: BREAST CANCER
     Dosage: 20 MG DAILY PO
     Route: 048
     Dates: start: 19990706, end: 20040716
  2. HYDROCHLOROTHIAZIDE [Concomitant]

REACTIONS (3)
  - ANXIETY [None]
  - BLOOD PRESSURE FLUCTUATION [None]
  - FEELING ABNORMAL [None]
